FAERS Safety Report 9695292 (Version 1)
Quarter: 2013Q4

REPORT INFORMATION
  Report Type: Spontaneous
  Country: JP (occurrence: JP)
  Receive Date: 20131119
  Receipt Date: 20131119
  Transmission Date: 20140711
  Serious: Yes (Other)
  Sender: FDA-Public Use
  Company Number: JP-ASTELLAS-2013JP010551

PATIENT
  Sex: Female
  Weight: 70 kg

DRUGS (3)
  1. PROGRAF [Suspect]
     Indication: RHEUMATOID ARTHRITIS
     Route: 048
  2. CIMZIA [Concomitant]
     Route: 058
  3. PREDNISOLONE [Concomitant]
     Route: 048

REACTIONS (1)
  - Vasculitis [Recovering/Resolving]
